FAERS Safety Report 15453490 (Version 3)
Quarter: 2018Q4

REPORT INFORMATION
  Report Type: Spontaneous
  Country: CN (occurrence: CN)
  Receive Date: 20181001
  Receipt Date: 20181109
  Transmission Date: 20190204
  Serious: Yes (Hospitalization, Other)
  Sender: FDA-Public Use
  Company Number: CN-SA-2018SA250750

PATIENT
  Age: 55 Year
  Sex: Female
  Weight: 75 kg

DRUGS (3)
  1. LANTUS SOLOSTAR [Suspect]
     Active Substance: INSULIN GLARGINE
     Indication: DIABETES MELLITUS
     Dosage: 40-45 IU/QD
     Route: 058
     Dates: start: 201202
  2. METFORMIN [Concomitant]
     Active Substance: METFORMIN HYDROCHLORIDE
     Indication: DIABETES MELLITUS
     Dosage: 2 DF, QD
     Route: 048
  3. ACARBOSE. [Concomitant]
     Active Substance: ACARBOSE
     Indication: DIABETES MELLITUS
     Dosage: 1 DF, BID
     Route: 048
     Dates: start: 201712

REACTIONS (6)
  - Blood glucose increased [Unknown]
  - Blindness unilateral [Not Recovered/Not Resolved]
  - Retinal haemorrhage [Not Recovered/Not Resolved]
  - Cataract [Not Recovered/Not Resolved]
  - Arteriosclerosis [Unknown]
  - Nephritis [Unknown]

NARRATIVE: CASE EVENT DATE: 20171007
